FAERS Safety Report 10597276 (Version 1)
Quarter: 2014Q4

REPORT INFORMATION
  Report Type: Spontaneous
  Country: US (occurrence: US)
  Receive Date: 20141121
  Receipt Date: 20141121
  Transmission Date: 20150529
  Serious: Yes (Other)
  Sender: FDA-Public Use
  Company Number: US-SUN PHARMACEUTICAL INDUSTRIES LTD-2014SUN02622

PATIENT
  Age: 74 Year
  Sex: Female

DRUGS (2)
  1. OXCARBAZEPINE TABLETS, 150 MG [Suspect]
     Active Substance: OXCARBAZEPINE
     Dosage: UNK
     Route: 065
  2. OXCARBAZEPINE TABLETS, 150 MG [Suspect]
     Active Substance: OXCARBAZEPINE
     Indication: TRIGEMINAL NEURALGIA
     Dosage: 1800 MG, OD
     Route: 065

REACTIONS (2)
  - Hyponatraemia [Recovering/Resolving]
  - Inappropriate antidiuretic hormone secretion [Recovering/Resolving]
